FAERS Safety Report 7485438-0 (Version None)
Quarter: 2011Q2

REPORT INFORMATION
  Report Type: 
  Country: None (occurrence: None)
  Receive Date: 20110517
  Receipt Date: 20110510
  Transmission Date: 20111010
  Serious: Yes (Other)
  Sender: FDA-Public Use
  Company Number: BR-US-EMD SERONO, INC.-7054376

PATIENT
  Sex: Female

DRUGS (4)
  1. DORFLEX [Concomitant]
  2. ACETAMINOPHEN [Concomitant]
  3. REBIF [Suspect]
     Indication: RELAPSING-REMITTING MULTIPLE SCLEROSIS
     Dates: start: 20100512
  4. PURAN T4 [Concomitant]

REACTIONS (7)
  - HYPOTHYROIDISM [None]
  - HEADACHE [None]
  - BLOOD THYROID STIMULATING HORMONE INCREASED [None]
  - NAUSEA [None]
  - PYREXIA [None]
  - BLOOD PRESSURE DECREASED [None]
  - INJECTION SITE PAIN [None]
